FAERS Safety Report 10387984 (Version 1)
Quarter: 2014Q3

REPORT INFORMATION
  Report Type: Spontaneous
  Country: US (occurrence: US)
  Receive Date: 20140815
  Receipt Date: 20140815
  Transmission Date: 20150326
  Serious: Yes (Hospitalization)
  Sender: FDA-Public Use
  Company Number: US-JNJFOC-20140810053

PATIENT
  Age: 75 Year
  Sex: Male

DRUGS (3)
  1. NEURONTIN [Concomitant]
     Active Substance: GABAPENTIN
     Indication: NEUROPATHY PERIPHERAL
  2. INSULIN [Concomitant]
     Active Substance: INSULIN NOS
     Indication: DIABETES MELLITUS
  3. INVOKANA [Suspect]
     Active Substance: CANAGLIFLOZIN
     Indication: TYPE 2 DIABETES MELLITUS
     Route: 048
     Dates: start: 20140527, end: 20140625

REACTIONS (8)
  - Confusional state [Unknown]
  - Cerebrovascular accident [Unknown]
  - Thrombosis [Unknown]
  - General physical health deterioration [Unknown]
  - Mental status changes [Unknown]
  - Encephalopathy [Unknown]
  - Hypoglycaemia [Unknown]
  - Tremor [Not Recovered/Not Resolved]

NARRATIVE: CASE EVENT DATE: 2014
